FAERS Safety Report 18695457 (Version 3)
Quarter: 2021Q4

REPORT INFORMATION
  Report Type: Spontaneous
  Country: US (occurrence: US)
  Receive Date: 20210104
  Receipt Date: 20211117
  Transmission Date: 20220303
  Serious: Yes (Hospitalization, Other)
  Sender: FDA-Public Use
  Company Number: US-PFIZER INC-2020512515

PATIENT
  Age: 43 Year
  Sex: Male

DRUGS (2)
  1. GEMCITABINE HYDROCHLORIDE [Suspect]
     Active Substance: GEMCITABINE HYDROCHLORIDE
     Dosage: UNK
  2. PACLITAXEL [Concomitant]
     Active Substance: PACLITAXEL
     Indication: Chemotherapy
     Dosage: UNK

REACTIONS (2)
  - Thrombotic microangiopathy [Unknown]
  - Renal tubular injury [Unknown]
